FAERS Safety Report 24674755 (Version 1)
Quarter: 2024Q4

REPORT INFORMATION
  Report Type: Spontaneous
  Country: GB (occurrence: GB)
  Receive Date: 20241128
  Receipt Date: 20241128
  Transmission Date: 20250115
  Serious: Yes (Other)
  Sender: BOEHRINGER INGELHEIM
  Company Number: GB-MHRA-TPP26343229C6186264YC1732542073198

PATIENT
  Age: 72 Year
  Sex: Male
  Weight: 126 kg

DRUGS (6)
  1. EMPAGLIFLOZIN [Suspect]
     Active Substance: EMPAGLIFLOZIN
     Indication: Ill-defined disorder
     Dosage: FORM STRENGTH: 10 MILLIGRAM
     Dates: start: 20240403, end: 20241125
  2. EDOXABAN [Concomitant]
     Active Substance: EDOXABAN
     Indication: Ill-defined disorder
     Dosage: TAKE ONE TABLET ONCE DAILY TO THIN BLOOD?FORM OF ADMIN: TPP YC - PLEASE RECLASSIFY
     Dates: start: 20240923
  3. BISOPROLOL [Concomitant]
     Active Substance: BISOPROLOL
     Indication: Ill-defined disorder
     Dosage: TAKE ONE TABLET ONCE A DAY?FORM OF ADMIN: TPP YC - PLEASE RECLASSIFY
     Dates: start: 20241014
  4. TADALAFIL [Concomitant]
     Active Substance: TADALAFIL
     Indication: Ill-defined disorder
     Dosage: TAKE ONE TABLET, 30 MINUTES BEFORE DESIRED EFFECT.?FORM OF ADMIN: TPP YC - PLEASE RECLASSIFY
     Dates: start: 20240214, end: 20241125
  5. ATORVASTATIN [Concomitant]
     Active Substance: ATORVASTATIN
     Indication: Ill-defined disorder
     Dosage: TAKE ONE AT NIGHT (HIGH INTENSITY STATIN)?FORM OF ADMIN: TPP YC - PLEASE RECLASSIFY
     Dates: start: 20240523
  6. YALTORMIN [Concomitant]
     Indication: Ill-defined disorder
     Dates: start: 20241125

REACTIONS (1)
  - Haematuria [Unknown]
